FAERS Safety Report 6429764-2 (Version None)
Quarter: 2009Q4

REPORT INFORMATION
  Report Type: 
  Country: None (occurrence: None)
  Receive Date: 20091103
  Receipt Date: 20091027
  Transmission Date: 20100525
  Serious: Yes (Other)
  Sender: FDA-Public Use
  Company Number: 2009AL006855

PATIENT
  Age: 11 Year
  Sex: Male
  Weight: 55 kg

DRUGS (4)
  1. RIFAMPIN [Suspect]
     Indication: LYMPH NODE TUBERCULOSIS
     Dosage: 600 MG; QD;
  2. ISONIAZID [Concomitant]
  3. PYRAZINAMIDE [Concomitant]
  4. ETHAMBUTOL HYDROCHLORIDE [Concomitant]

REACTIONS (4)
  - LYMPHADENITIS [None]
  - LYMPHADENOPATHY [None]
  - PURULENCE [None]
  - ULCER [None]
